FAERS Safety Report 4927694-6 (Version None)
Quarter: 2006Q1

REPORT INFORMATION
  Report Type: 
  Country: None (occurrence: None)
  Receive Date: 20060228
  Receipt Date: 20050125
  Transmission Date: 20060701
  Serious: Yes (Other)
  Sender: FDA-Public Use
  Company Number: US-MERCK-0501USA04119

PATIENT
  Age: 49 Year
  Sex: Female

DRUGS (31)
  1. VIOXX [Suspect]
     Route: 048
     Dates: start: 20020101, end: 20040101
  2. ACTOS [Concomitant]
     Route: 065
  3. GLUCOPHAGE [Concomitant]
     Route: 065
  4. NEXIUM [Concomitant]
     Route: 065
  5. NEURONTIN [Concomitant]
     Route: 065
  6. TOPAMAX [Concomitant]
     Route: 065
  7. SEROQUEL [Concomitant]
     Route: 065
  8. TRIAMCINOLONE [Concomitant]
     Route: 065
  9. PATANOL [Concomitant]
     Route: 065
  10. ZELNORM [Concomitant]
     Route: 065
  11. PAXIL [Concomitant]
     Route: 065
  12. PREDNISONE [Concomitant]
     Route: 065
  13. LIPITOR [Concomitant]
     Route: 065
  14. ALBUTEROL [Concomitant]
     Route: 065
  15. ALBUTEROL SULFATE [Concomitant]
     Route: 065
  16. AMOXICILLIN [Concomitant]
     Route: 065
  17. ACETAMINOPHEN AND CODEINE [Concomitant]
     Route: 065
  18. CIPRO [Concomitant]
     Route: 065
  19. ADVAIR DISKUS 100/50 [Concomitant]
     Route: 065
  20. HYDROCODONE BITARTRATE + ACETAMINOPHEN [Concomitant]
     Route: 065
  21. ENDOCET [Concomitant]
     Route: 065
  22. ACETAMINOPHEN AND PROPOXYPHENE NAPSYLATE [Concomitant]
     Route: 065
  23. LEVAQUIN [Concomitant]
     Route: 065
  24. ORABET (METFORMIN HYDROCHLORIDE) [Concomitant]
     Route: 065
  25. ATROVENT [Concomitant]
     Route: 065
  26. KENALOG [Concomitant]
     Route: 065
  27. ZYLOPRIM [Concomitant]
     Route: 065
  28. COLACE [Concomitant]
     Route: 065
  29. VASOTEC RPD [Concomitant]
     Route: 065
  30. GLUCOTROL [Concomitant]
     Route: 065
  31. DYAZIDE [Concomitant]
     Route: 065

REACTIONS (3)
  - CARDIOVASCULAR DISORDER [None]
  - INJURY [None]
  - MYOCARDIAL INFARCTION [None]
